FAERS Safety Report 23277937 (Version 1)
Quarter: 2023Q4

REPORT INFORMATION
  Report Type: Spontaneous
  Country: US (occurrence: US)
  Receive Date: 20231208
  Receipt Date: 20231208
  Transmission Date: 20240109
  Serious: No
  Sender: FDA-Public Use
  Company Number: US-BRISTOL-MYERS SQUIBB COMPANY-2023-177995

PATIENT
  Age: 72 Year
  Sex: Female
  Weight: 76.2 kg

DRUGS (1)
  1. LENALIDOMIDE [Suspect]
     Active Substance: LENALIDOMIDE
     Indication: Primary amyloidosis
     Route: 048
     Dates: start: 20230829

REACTIONS (3)
  - Asthenia [Unknown]
  - Fatigue [Unknown]
  - Off label use [Unknown]
